FAERS Safety Report 9266913 (Version 2)
Quarter: 2013Q2

REPORT INFORMATION
  Report Type: Report from Study
  Country: US (occurrence: US)
  Receive Date: 20130502
  Receipt Date: 20130513
  Transmission Date: 20140414
  Serious: Yes (Hospitalization)
  Sender: FDA-Public Use
  Company Number: US-ACTELION-A-NJ2013-82568

PATIENT
  Age: 53 Year
  Sex: Male

DRUGS (3)
  1. TRACLEER [Suspect]
     Indication: PULMONARY HYPERTENSION
     Dosage: 125 MG, BID
     Route: 048
     Dates: start: 20090817
  2. TRACLEER [Suspect]
     Dosage: 62.5 MG, BID
     Route: 048
     Dates: start: 20090209, end: 20090816
  3. ADCIRCA [Concomitant]

REACTIONS (2)
  - Pneumothorax [Recovered/Resolved]
  - Dyspnoea [Recovered/Resolved]
